FAERS Safety Report 17014758 (Version 1)
Quarter: 2019Q4

REPORT INFORMATION
  Report Type: Spontaneous
  Country: US (occurrence: US)
  Receive Date: 20191111
  Receipt Date: 20191111
  Transmission Date: 20200122
  Serious: No
  Sender: FDA-Public Use
  Company Number: US-ALLERGAN-1940815US

PATIENT
  Age: 26 Year
  Sex: Female

DRUGS (1)
  1. LO LOESTRIN FE [Suspect]
     Active Substance: ETHINYL ESTRADIOL\NORETHINDRONE ACETATE
     Indication: CYST
     Dosage: UNK

REACTIONS (5)
  - Nightmare [Unknown]
  - Depressed mood [Unknown]
  - Crying [Unknown]
  - Off label use [Unknown]
  - Uterine haemorrhage [Unknown]
